FAERS Safety Report 7940956-3 (Version None)
Quarter: 2011Q4

REPORT INFORMATION
  Report Type: 
  Country: None (occurrence: None)
  Receive Date: 20111128
  Receipt Date: 20111124
  Transmission Date: 20120403
  Serious: Yes (Death, Other)
  Sender: FDA-Public Use
  Company Number: PHHY2011GB098616

PATIENT
  Age: 25 Year
  Sex: Female

DRUGS (3)
  1. IBUPROFEN [Suspect]
     Indication: NASOPHARYNGITIS
     Route: 048
  2. ACETAMINOPHEN [Suspect]
     Indication: NASOPHARYNGITIS
     Dosage: UNK UKN, UNK
     Route: 048
     Dates: start: 20101201
  3. ACETAMINOPHEN [Suspect]
     Indication: NASOPHARYNGITIS
     Dosage: UNK
     Route: 048
     Dates: start: 20101201

REACTIONS (17)
  - HEPATIC FAILURE [None]
  - OVERDOSE [None]
  - PHARYNGITIS STREPTOCOCCAL [None]
  - HALLUCINATION [None]
  - JAUNDICE [None]
  - LOWER RESPIRATORY TRACT INFECTION [None]
  - GAIT DISTURBANCE [None]
  - DYSPHAGIA [None]
  - MEMORY IMPAIRMENT [None]
  - DRUG ADMINISTRATION ERROR [None]
  - ABNORMAL BEHAVIOUR [None]
  - CHROMATURIA [None]
  - APHTHOUS STOMATITIS [None]
  - RESTLESSNESS [None]
  - PHARYNGEAL ERYTHEMA [None]
  - YELLOW SKIN [None]
  - MOUTH CYST [None]
